FAERS Safety Report 21234413 (Version 1)
Quarter: 2022Q3

REPORT INFORMATION
  Report Type: Spontaneous
  Country: IR (occurrence: IR)
  Receive Date: 20220820
  Receipt Date: 20220820
  Transmission Date: 20221027
  Serious: Yes (Hospitalization)
  Sender: FDA-Public Use
  Company Number: IR-STRIDES ARCOLAB LIMITED-2022SP010526

PATIENT
  Age: 19 Year
  Sex: Female

DRUGS (3)
  1. METRONIDAZOLE [Suspect]
     Active Substance: METRONIDAZOLE
     Indication: Gastritis
     Dosage: 500 MILLIGRAM, TID
     Route: 065
  2. PANTOPRAZOLE [Concomitant]
     Active Substance: PANTOPRAZOLE
     Indication: Gastritis
     Dosage: 40 MILLIGRAM, PER DAY
     Route: 065
  3. CHLORDIAZEPOXIDE;CLIDINIUM BROMIDE [Concomitant]
     Indication: Gastritis
     Dosage: 5 MILLIGRAM
     Route: 065

REACTIONS (4)
  - Gait inability [Recovered/Resolved]
  - Encephalopathy [Recovered/Resolved]
  - Toxicity to various agents [Unknown]
  - Off label use [Unknown]
